FAERS Safety Report 9616868 (Version 1)
Quarter: 2013Q4

REPORT INFORMATION
  Report Type: Spontaneous
  Country: IT (occurrence: IT)
  Receive Date: 20131011
  Receipt Date: 20131011
  Transmission Date: 20140711
  Serious: Yes (Other)
  Sender: FDA-Public Use
  Company Number: IT-TEVA-435296ISR

PATIENT
  Age: 87 Year
  Sex: Female

DRUGS (6)
  1. TICLOPIDINA CLORIDRATO [Suspect]
     Dosage: 2 DOSAGE FORMS DAILY;
     Route: 048
     Dates: start: 20130101, end: 20130719
  2. OLPREZIDE 20MG/12,5MG [Concomitant]
  3. LOBIVON 5MG [Concomitant]
  4. CALCIO CARBONATO/COLECALCIFEROLO [Concomitant]
  5. FUROSEMIDE [Concomitant]
  6. AMLODIPINA BESILATO [Concomitant]

REACTIONS (2)
  - Anaemia [Not Recovered/Not Resolved]
  - Erythropoiesis abnormal [Not Recovered/Not Resolved]
